FAERS Safety Report 6145438-X (Version None)
Quarter: 2009Q2

REPORT INFORMATION
  Report Type: 
  Country: None (occurrence: None)
  Receive Date: 20090402
  Receipt Date: 20090325
  Transmission Date: 20091009
  Serious: Yes (Hospitalization)
  Sender: FDA-Public Use
  Company Number: TRP_05906_2008

PATIENT
  Sex: Female

DRUGS (2)
  1. RIBASPHERE [Suspect]
     Indication: HEPATITIS C
     Dosage: 600 MG BID
     Dates: start: 20080303, end: 20090301
  2. PEGASYS [Suspect]
     Indication: HEPATITIS C
     Dosage: 180 UG 1X/WEEK
     Dates: start: 20080303, end: 20090301

REACTIONS (17)
  - ALOPECIA [None]
  - ANAEMIA [None]
  - COUGH [None]
  - CRYING [None]
  - DRY SKIN [None]
  - EMOTIONAL DISORDER [None]
  - FATIGUE [None]
  - FEELING OF DESPAIR [None]
  - HYPOTHYROIDISM [None]
  - INSOMNIA [None]
  - MENORRHAGIA [None]
  - PLATELET COUNT DECREASED [None]
  - PRURITUS [None]
  - RESPIRATORY TRACT CONGESTION [None]
  - URTICARIA [None]
  - WEIGHT DECREASED [None]
  - WEIGHT INCREASED [None]
